FAERS Safety Report 12678850 (Version 3)
Quarter: 2016Q3

REPORT INFORMATION
  Report Type: Spontaneous
  Country: IT (occurrence: IT)
  Receive Date: 20160824
  Receipt Date: 20160912
  Transmission Date: 20161109
  Serious: Yes (Life-Threatening, Hospitalization)
  Sender: FDA-Public Use
  Company Number: IT-ROCHE-1815584

PATIENT
  Age: 36 Year
  Sex: Female

DRUGS (3)
  1. HERCEPTIN [Suspect]
     Active Substance: TRASTUZUMAB
     Indication: HER-2 POSITIVE BREAST CANCER
     Dosage: CONCENTRARE FOR SOLUTION FOR INTRAVENOUS?INFUSION
     Route: 042
     Dates: start: 20160620
  2. PERJETA [Suspect]
     Active Substance: PERTUZUMAB
     Indication: HER-2 POSITIVE BREAST CANCER
     Dosage: CONCENTRARE FOR SOLUTION FOR INTRAVENOUS?INFUSION
     Route: 065
     Dates: start: 20160620
  3. PACLITAXEL. [Suspect]
     Active Substance: PACLITAXEL
     Indication: HER-2 POSITIVE BREAST CANCER
     Dosage: CONCENTRARE FOR SOLUTION FOR INTRAVENOUS?INFUSION
     Route: 042
     Dates: start: 20160627

REACTIONS (8)
  - Lung infiltration [Recovering/Resolving]
  - Chills [Unknown]
  - Sinus pain [Unknown]
  - Respiratory distress [Unknown]
  - Dyspnoea [Unknown]
  - Hypersensitivity [Unknown]
  - Pyrexia [Unknown]
  - Headache [Unknown]

NARRATIVE: CASE EVENT DATE: 201608
